FAERS Safety Report 9254830 (Version 2)
Quarter: 2013Q2

REPORT INFORMATION
  Report Type: Spontaneous
  Country: US (occurrence: None)
  Receive Date: 20130418
  Receipt Date: 20130510
  Transmission Date: 20140414
  Serious: Yes (Other)
  Sender: FDA-Public Use
  Company Number: JPI-P-031071

PATIENT
  Age: 51 Year
  Sex: Male

DRUGS (8)
  1. XYREM (500 MILLIGRAM/MILLILITERS, SOLUTION) (SODIUM OXYBATE) [Suspect]
     Indication: NARCOLEPSY
     Dosage: 4.5 GM (2.25 GM, 2 IN 1 D)
     Route: 048
     Dates: start: 20051004
  2. MODAFINIL [Concomitant]
  3. FLUTICASONE [Concomitant]
  4. LISINOPRIL/HYDROCHLOROTHIAXIDE [Concomitant]
  5. AMLODIPINE [Concomitant]
  6. SIMVASTATIN [Concomitant]
  7. METHYLPHENIDATE [Concomitant]
  8. KETOCONAZOLE [Concomitant]

REACTIONS (4)
  - Lung cancer metastatic [None]
  - Sleep apnoea syndrome [None]
  - Rhinitis allergic [None]
  - Cataplexy [None]
